FAERS Safety Report 6129754-3 (Version None)
Quarter: 2009Q1

REPORT INFORMATION
  Report Type: 
  Country: None (occurrence: None)
  Receive Date: 20090324
  Receipt Date: 20090323
  Transmission Date: 20090719
  Serious: Yes (Hospitalization)
  Sender: FDA-Public Use
  Company Number: B0565610A

PATIENT
  Age: 56 Year
  Sex: Male

DRUGS (4)
  1. AUGMENTIN '125' [Suspect]
     Indication: SINUSITIS
     Route: 048
     Dates: start: 20090126, end: 20090129
  2. AMOXICILLIN TRIHYDRATE [Suspect]
     Indication: SINUSITIS
     Route: 048
     Dates: start: 20090117, end: 20090121
  3. BACTRIM [Suspect]
     Indication: PHARYNGITIS
     Route: 048
     Dates: start: 20090106, end: 20090129
  4. CLARITHROMYCIN [Suspect]
     Indication: SINUSITIS
     Route: 048
     Dates: start: 20090122, end: 20090125

REACTIONS (7)
  - AGRANULOCYTOSIS [None]
  - BLOOD ALKALINE PHOSPHATASE INCREASED [None]
  - GAMMA-GLUTAMYLTRANSFERASE INCREASED [None]
  - JAUNDICE [None]
  - LIVER DISORDER [None]
  - OESOPHAGEAL CANDIDIASIS [None]
  - ORAL CANDIDIASIS [None]
